FAERS Safety Report 18106652 (Version 1)
Quarter: 2020Q3

REPORT INFORMATION
  Report Type: Spontaneous
  Country: US (occurrence: US)
  Receive Date: 20200804
  Receipt Date: 20200804
  Transmission Date: 20201103
  Serious: Yes (Life-Threatening, Other)
  Sender: FDA-Public Use
  Company Number: US-PROVENSIS LTD. (PART OF THE BOSTON SCIENTIFIC GROUP)-2088094

PATIENT
  Age: 41 Year
  Sex: Female
  Weight: 153 kg

DRUGS (5)
  1. ALEVE [Concomitant]
     Active Substance: NAPROXEN SODIUM
  2. VARITHENA [Suspect]
     Active Substance: POLIDOCANOL
  3. NEXIUM [Concomitant]
     Active Substance: ESOMEPRAZOLE MAGNESIUM
  4. VARITHENA [Suspect]
     Active Substance: POLIDOCANOL
     Indication: VEIN DISORDER
  5. BIOTIN [Concomitant]
     Active Substance: BIOTIN

REACTIONS (10)
  - Burning sensation [Unknown]
  - Skin discolouration [Unknown]
  - Oedema peripheral [Unknown]
  - Cellulitis [Unknown]
  - Skin exfoliation [Unknown]
  - Infection [Unknown]
  - Pruritus [Unknown]
  - Pain [Unknown]
  - Swelling [Unknown]
  - Limb discomfort [Unknown]

NARRATIVE: CASE EVENT DATE: 20161115
